FAERS Safety Report 4948398-X (Version None)
Quarter: 2006Q1

REPORT INFORMATION
  Report Type: 
  Country: None (occurrence: None)
  Receive Date: 20060201
  Receipt Date: 20051109
  Transmission Date: 20060701
  Serious: No
  Sender: FDA-Public Use
  Company Number: 2005PV004240

PATIENT
  Age: 66 Year
  Sex: Female
  Weight: 80.7403 kg

DRUGS (3)
  1. BYETTA [Suspect]
     Indication: DIABETES MELLITUS INSULIN-DEPENDENT
     Dosage: 5 MCG; BID; SC
     Route: 058
     Dates: start: 20051105
  2. ACTOS [Concomitant]
  3. HUMULIN 70/30 [Concomitant]

REACTIONS (6)
  - BLOOD GLUCOSE DECREASED [None]
  - BLOOD GLUCOSE INCREASED [None]
  - FEELING COLD [None]
  - NAUSEA [None]
  - RETCHING [None]
  - TREMOR [None]
